FAERS Safety Report 26074327 (Version 1)
Quarter: 2025Q4

REPORT INFORMATION
  Report Type: Spontaneous
  Country: ZA (occurrence: ZA)
  Receive Date: 20251121
  Receipt Date: 20251121
  Transmission Date: 20260118
  Serious: Yes (Other)
  Sender: ORGANON
  Company Number: ZA-ORGANON-O2511ZAF001445

PATIENT
  Sex: Female

DRUGS (1)
  1. LIPTRUZET [Suspect]
     Active Substance: ATORVASTATIN CALCIUM\EZETIMIBE
     Dosage: UNK (10/40) UNITS NOT REPORTED

REACTIONS (1)
  - Colitis [Unknown]
